FAERS Safety Report 10520993 (Version 2)
Quarter: 2014Q4

REPORT INFORMATION
  Report Type: Spontaneous
  Country: FR (occurrence: FR)
  Receive Date: 20141016
  Receipt Date: 20141016
  Transmission Date: 20150528
  Serious: Yes (Life-Threatening, Hospitalization, Other)
  Sender: FDA-Public Use
  Company Number: FR-PFIZER INC-2014035672

PATIENT
  Age: 63 Year
  Sex: Male

DRUGS (8)
  1. CASPOFUNGIN [Concomitant]
     Active Substance: CASPOFUNGIN
  2. IDARUBICIN HCL [Suspect]
     Active Substance: IDARUBICIN HYDROCHLORIDE
     Indication: ACUTE MYELOID LEUKAEMIA
     Dosage: UNK
     Dates: start: 20131223
  3. CIPROFLOXACIN. [Concomitant]
     Active Substance: CIPROFLOXACIN
  4. ENBREL [Suspect]
     Active Substance: ETANERCEPT
     Indication: PSORIATIC ARTHROPATHY
     Dosage: 50 MG, WEEKLY
     Route: 058
     Dates: start: 20050411, end: 20131024
  5. CILASTATIN/IMIPEN [Concomitant]
  6. VESANOID [Suspect]
     Active Substance: TRETINOIN
     Dosage: UNK
     Dates: start: 20131220
  7. ATRA [Suspect]
     Active Substance: TRETINOIN
     Dosage: UNK
     Dates: start: 20131220
  8. ARACYTINE [Suspect]
     Active Substance: CYTARABINE
     Dosage: UNK
     Dates: start: 20131223

REACTIONS (17)
  - Mucosal inflammation [Recovering/Resolving]
  - Acute myeloid leukaemia [Not Recovered/Not Resolved]
  - Toxicity to various agents [Unknown]
  - Cestode infection [Unknown]
  - Respiratory failure [Recovering/Resolving]
  - Campylobacter gastroenteritis [Recovering/Resolving]
  - Diarrhoea [Recovered/Resolved]
  - Jaundice [Unknown]
  - Anorectal discomfort [Unknown]
  - Aplasia [Recovered/Resolved]
  - Weight decreased [Unknown]
  - Spleen disorder [Unknown]
  - Rectal haemorrhage [Recovered/Resolved]
  - Retinoic acid syndrome [Recovering/Resolving]
  - Pyrexia [Unknown]
  - Vomiting [Unknown]
  - Hiccups [Unknown]

NARRATIVE: CASE EVENT DATE: 20130517
